FAERS Safety Report 6629549-8 (Version None)
Quarter: 2010Q1

REPORT INFORMATION
  Report Type: 
  Country: None (occurrence: None)
  Receive Date: 20100311
  Receipt Date: 20100225
  Transmission Date: 20100710
  Serious: Yes (Hospitalization, Other)
  Sender: FDA-Public Use
  Company Number: US-ELI_LILLY_AND_COMPANY-US201003000731

PATIENT
  Sex: Female

DRUGS (9)
  1. FORTEO [Suspect]
     Indication: OSTEOPOROSIS
     Dosage: 20 UG, DAILY (1/D)
     Dates: start: 20040218, end: 20060309
  2. FORTEO [Suspect]
     Dosage: 20 UG, DAILY (1/D)
     Dates: start: 20091009
  3. ACTONEL [Concomitant]
  4. SYNTHROID [Concomitant]
     Dosage: 0.125 UG, DAILY (1/D)
  5. MICARDIS [Concomitant]
     Dosage: 40 MG, DAILY (1/D)
  6. VITAMIN D [Concomitant]
     Dosage: 1000 U, DAILY (1/D)
  7. CALCIUM [Concomitant]
     Dosage: 1300 MG, DAILY (1/D)
  8. LEXAPRO [Concomitant]
     Dosage: 10 MG, DAILY (1/D)
  9. MULTI-VITAMIN [Concomitant]
     Dosage: UNK, DAILY (1/D)

REACTIONS (10)
  - BONE DENSITY DECREASED [None]
  - FALL [None]
  - FRACTURE DELAYED UNION [None]
  - GASTRIC ULCER [None]
  - HYPERCHLORHYDRIA [None]
  - INTENTIONAL DRUG MISUSE [None]
  - INTESTINAL RESECTION [None]
  - PELVIC FRACTURE [None]
  - RESORPTION BONE INCREASED [None]
  - TOOTH LOSS [None]
